FAERS Safety Report 5738847-1 (Version None)
Quarter: 2008Q2

REPORT INFORMATION
  Report Type: 
  Country: None (occurrence: None)
  Receive Date: 20080515
  Receipt Date: 20080410
  Transmission Date: 20081010
  Serious: No
  Sender: FDA-Public Use
  Company Number: A0722158A

PATIENT
  Age: 72 Year
  Sex: Female

DRUGS (8)
  1. VERAMYST [Suspect]
     Dosage: 27.5MCG UNKNOWN
     Route: 045
     Dates: start: 20071001
  2. BENICAR [Concomitant]
  3. ARIMIDEX [Concomitant]
  4. FISH OIL [Concomitant]
  5. CENTRUM [Concomitant]
  6. VYTORIN [Concomitant]
  7. NIASPAN [Concomitant]
  8. FLOMAX [Concomitant]

REACTIONS (5)
  - ABDOMINAL PAIN UPPER [None]
  - GINGIVAL INFECTION [None]
  - GINGIVAL SWELLING [None]
  - HAEMOPTYSIS [None]
  - ORAL SURGERY [None]
